FAERS Safety Report 10021884 (Version 3)
Quarter: 2015Q3

REPORT INFORMATION
  Report Type: Report from Study
  Country: JP (occurrence: JP)
  Receive Date: 20140319
  Receipt Date: 20150810
  Transmission Date: 20151125
  Serious: Yes (Life-Threatening)
  Sender: FDA-Public Use
  Company Number: JP-PFIZER INC-2014075124

PATIENT
  Age: 58 Year
  Sex: Male
  Weight: 62 kg

DRUGS (10)
  1. FLORINEF ACETATE [Concomitant]
     Active Substance: FLUDROCORTISONE ACETATE
     Dosage: 0.05 MG/DAY
     Route: 048
     Dates: start: 20131226
  2. XALKORI [Suspect]
     Active Substance: CRIZOTINIB
     Dosage: 200 MG, 2X/DAY
     Route: 048
     Dates: start: 20140215, end: 20140217
  3. LANSOPRAZOLE. [Concomitant]
     Active Substance: LANSOPRAZOLE
     Dosage: 30 MG ONCE DAILY
     Route: 048
     Dates: start: 20131227
  4. PRIMPERAN [Concomitant]
     Active Substance: METOCLOPRAMIDE HYDROCHLORIDE
     Dosage: 5 MG, 3X/DAY
     Route: 048
     Dates: start: 20131225, end: 20140228
  5. XALKORI [Suspect]
     Active Substance: CRIZOTINIB
     Indication: NON-SMALL CELL LUNG CANCER
     Dosage: 250 MG, 2X/DAY
     Route: 048
     Dates: start: 20140124, end: 20140131
  6. MAGNESIUM OXIDE. [Concomitant]
     Active Substance: MAGNESIUM OXIDE
     Dosage: 0.5 G, 3X/DAY
     Route: 048
     Dates: start: 20131227
  7. XALKORI [Suspect]
     Active Substance: CRIZOTINIB
     Dosage: 250 MG, 1X/DAY
     Route: 048
     Dates: start: 20140218, end: 20140223
  8. PANTOSIN [Concomitant]
     Active Substance: PANTETHINE
     Dosage: 1.2 G, 3X/DAY
     Route: 048
     Dates: start: 20131227
  9. OXYCONTIN [Concomitant]
     Active Substance: OXYCODONE HYDROCHLORIDE
     Dosage: 5 MG, 3X/DAY
     Route: 048
     Dates: start: 20131227, end: 20140131
  10. NOVAMIN [Concomitant]
     Active Substance: PROCHLORPERAZINE MALEATE
     Dosage: 5 MG, 3X/DAY
     Route: 048
     Dates: start: 20131227, end: 20140131

REACTIONS (1)
  - Gastrointestinal toxicity [Recovered/Resolved with Sequelae]

NARRATIVE: CASE EVENT DATE: 20140125
